FAERS Safety Report 10084331 (Version 1)
Quarter: 2014Q2

REPORT INFORMATION
  Report Type: Spontaneous
  Country: US (occurrence: None)
  Receive Date: 20140415
  Receipt Date: 20140415
  Transmission Date: 20141212
  Serious: Yes (Death)
  Sender: FDA-Public Use
  Company Number: SYM-2014-18838

PATIENT
  Age: 72 Year
  Sex: Female

DRUGS (16)
  1. XENAZINE [Suspect]
     Indication: HUNTINGTON^S DISEASE
     Dosage: 1.5 TABLETS IN THE MORNING AND AT NOON AND 1 TABLET IN THE EVENING, ORAL 01/18/2013 - ONGOING ONGOING
     Route: 048
     Dates: start: 20130118
  2. ACETAMINOPHEN (PARACETAMOL) (ACETAMINOPHEN (PARACETAMOL) [Concomitant]
  3. CLONAZEPAM (CLONAZEPAM) (CLONAZEPAM) [Concomitant]
  4. DEPOKENE (OTHER THERAPEUTIC PRODUCTS) [Concomitant]
  5. DULCOLAX (BISACODYL) (BISACODYL) [Concomitant]
  6. DUONEB (COMBIVENT) (IPRATROPIUM BROMIDE, SALBUTAMOL SULFATE) [Concomitant]
  7. HALOPERIDOL (HALOPERIDOL) (HALOPERIDOL) [Concomitant]
  8. JEVITY (ELECTROLYTES NOS W/ FATTY ACIDS NOS/GLYCINEMA) (POTASSIUM BICARBONATE, POTASSIUM BITARTRATE, VITAMINS NOS, MINERALS NOS, ELECTROLYTES NOS, FATTY ACIDS NOS, ZEA MAYS  OIL, ZEA MAYS SEED, GLYCINE MAX SEED OIL) [Concomitant]
  9. METOPROLOL (METOPROLOL) [Concomitant]
  10. NYSTATIN (NYSTATIN) (NYSTATIN) [Concomitant]
  11. OXYCODONE (OXYCODONE) (OXYCODONE) [Concomitant]
  12. SENNA (SENNA ALEXANDRIA) (SENNA ALEXANDRINA) [Concomitant]
  13. SEROQUEL (QUETIAPINE FUMARATE) (QUETIAPINE FUMARATE) [Concomitant]
  14. SULPHADINE (SULFADIMINE) (SULFADIMIDE) [Concomitant]
  15. VITAMIN D (VITAMIN D NOS) (VITAMIN D NOS) [Concomitant]
  16. ZOLOFT (SERTRALINE HYDROHCLORIDE) (SERTALINE HYDROCHLORIDE) [Concomitant]

REACTIONS (2)
  - Disease progression [None]
  - Respiratory disorder [None]
